FAERS Safety Report 5248765-3 (Version None)
Quarter: 2007Q1

REPORT INFORMATION
  Report Type: 
  Country: None (occurrence: None)
  Receive Date: 20070228
  Receipt Date: 20060113
  Transmission Date: 20070707
  Serious: No
  Sender: FDA-Public Use
  Company Number: 2005-04972

PATIENT
  Age: 51 Year
  Sex: Male

DRUGS (4)
  1. VALTREX [Suspect]
     Indication: INFECTION PROPHYLAXIS
     Route: 048
     Dates: start: 20051101
  2. VFEND [Suspect]
     Indication: INFECTION PROPHYLAXIS
     Route: 065
     Dates: start: 20051101
  3. DAPSONE [Suspect]
     Indication: INFECTION PROPHYLAXIS
     Route: 065
     Dates: start: 20051101
  4. PROGRAF [Suspect]
     Indication: PROPHYLAXIS AGAINST TRANSPLANT REJECTION
     Dosage: 1TAB TWICE PER DAY
     Route: 048

REACTIONS (2)
  - URINE OUTPUT DECREASED [None]
  - WHITE BLOOD CELL COUNT INCREASED [None]
